FAERS Safety Report 15290903 (Version 1)
Quarter: 2018Q3

REPORT INFORMATION
  Report Type: Spontaneous
  Country: US (occurrence: US)
  Receive Date: 20180817
  Receipt Date: 20180817
  Transmission Date: 20181010
  Serious: Yes (Other)
  Sender: FDA-Public Use
  Company Number: US-PFIZER INC-2018329353

PATIENT
  Age: 72 Year
  Sex: Female
  Weight: 74.84 kg

DRUGS (6)
  1. XELJANZ XR [Suspect]
     Active Substance: TOFACITINIB CITRATE
     Indication: RHEUMATOID ARTHRITIS
     Dosage: 11 MG, 1X/DAY
     Route: 048
     Dates: start: 201806
  2. PREDNISONE. [Suspect]
     Active Substance: PREDNISONE
     Indication: RHEUMATOID ARTHRITIS
     Dosage: 5 MG, UNK
  3. TRAZODONE [Concomitant]
     Active Substance: TRAZODONE HYDROCHLORIDE
     Indication: DEPRESSION
  4. PREDNISONE. [Suspect]
     Active Substance: PREDNISONE
     Dosage: 1 MG, UNK
  5. TRAZODONE [Concomitant]
     Active Substance: TRAZODONE HYDROCHLORIDE
     Indication: SLEEP DISORDER
     Dosage: 40 MG, 1X/DAY(40 MG, TABLET, ONCE AT NIGHT)
     Route: 048
  6. ESCITALOPRAM [Concomitant]
     Active Substance: ESCITALOPRAM OXALATE
     Indication: DEPRESSION
     Dosage: 15 MG, 1X/DAY(ONCE A DAY, 15 MG IT^S A TABLET I TAKE A 10 AND I TAKE HALF A 10 SO IT^S 15)

REACTIONS (3)
  - Skin lesion [Unknown]
  - Haemorrhage [Unknown]
  - Blood blister [Unknown]
